FAERS Safety Report 21632680 (Version 3)
Quarter: 2022Q4

REPORT INFORMATION
  Report Type: Report from Study
  Country: US (occurrence: US)
  Receive Date: 20221123
  Receipt Date: 20221202
  Transmission Date: 20230113
  Serious: Yes (Other)
  Sender: FDA-Public Use
  Company Number: US-KADMON-US-KAD-22-00769

PATIENT
  Age: 61 Year
  Sex: Male

DRUGS (13)
  1. BELUMOSUDIL MESYLATE [Suspect]
     Active Substance: BELUMOSUDIL MESYLATE
     Indication: Chronic graft versus host disease
     Dosage: 200 MG, QD,BEFORE LUNCH AROUND NOON AND AM WITH FOOD
     Route: 048
     Dates: start: 20220804
  2. METFORMIN HYDROCHLORIDE [Concomitant]
     Active Substance: METFORMIN HYDROCHLORIDE
     Indication: Product used for unknown indication
     Dosage: 500 MG, BID
  3. JAKAFI [Concomitant]
     Active Substance: RUXOLITINIB
     Indication: Product used for unknown indication
     Dosage: 20 MG, BID
  4. PREDNISONE [Concomitant]
     Active Substance: PREDNISONE
     Indication: Product used for unknown indication
     Dosage: 20 MG, QD
  5. TESTOSTERONE CYPIONATE [Concomitant]
     Active Substance: TESTOSTERONE CYPIONATE
     Indication: Product used for unknown indication
     Dosage: 0.5 ML, QW
  6. TESTOSTERONE CYPIONATE [Concomitant]
     Active Substance: TESTOSTERONE CYPIONATE
     Dosage: UNK, QOW
     Route: 030
  7. CIALIS [Concomitant]
     Active Substance: TADALAFIL
     Indication: Product used for unknown indication
     Dosage: 20 MG, QD
  8. CIALIS [Concomitant]
     Active Substance: TADALAFIL
     Dosage: 5 MG
  9. CRESTOR [Concomitant]
     Active Substance: ROSUVASTATIN CALCIUM
     Dosage: UNK
  10. METFORMIN [Concomitant]
     Active Substance: METFORMIN HYDROCHLORIDE
     Dosage: 500 MG, BID
  11. ACYCLOVIR [Concomitant]
     Active Substance: ACYCLOVIR
     Indication: Product used for unknown indication
     Dosage: UNK, BID
  12. SYNTHROID [Concomitant]
     Active Substance: LEVOTHYROXINE SODIUM
     Dosage: 50 UG, QD
  13. POSACONAZOLE [Concomitant]
     Active Substance: POSACONAZOLE
     Indication: Product used for unknown indication
     Dosage: UNK

REACTIONS (22)
  - Graft versus host disease in skin [Unknown]
  - Neuropathy peripheral [Unknown]
  - Cellulitis [Unknown]
  - Dry mouth [Unknown]
  - Condition aggravated [Unknown]
  - Nasopharyngitis [Unknown]
  - Lacrimation increased [Unknown]
  - Diarrhoea [Recovering/Resolving]
  - Cough [Unknown]
  - Dyspnoea [Unknown]
  - Fatigue [Unknown]
  - Faeces soft [Recovering/Resolving]
  - Taste disorder [Unknown]
  - Nausea [Unknown]
  - Vomiting [Unknown]
  - Mucosal inflammation [Unknown]
  - Weight decreased [Unknown]
  - Faeces soft [Unknown]
  - Rash macular [Unknown]
  - Productive cough [Unknown]
  - Aspartate aminotransferase increased [Unknown]
  - Constipation [Unknown]

NARRATIVE: CASE EVENT DATE: 20221001
